FAERS Safety Report 24681332 (Version 1)
Quarter: 2024Q4

REPORT INFORMATION
  Report Type: Spontaneous
  Country: US (occurrence: US)
  Receive Date: 20241129
  Receipt Date: 20241129
  Transmission Date: 20250115
  Serious: No
  Sender: ALEXION PHARMACEUTICALS
  Company Number: US-SANOFI-02278824

PATIENT
  Age: 2 Month
  Weight: 4.59 kg

DRUGS (2)
  1. BEYFORTUS [Suspect]
     Active Substance: NIRSEVIMAB-ALIP
     Indication: Antiviral prophylaxis
     Dosage: 100 MG, 1X
  2. BEYFORTUS [Suspect]
     Active Substance: NIRSEVIMAB-ALIP
     Dosage: 100 MG, 1X

REACTIONS (2)
  - Flatulence [Unknown]
  - Incorrect dose administered [Unknown]
